FAERS Safety Report 9425151 (Version 1)
Quarter: 2013Q3

REPORT INFORMATION
  Report Type: Spontaneous
  Country: US (occurrence: US)
  Receive Date: 20130729
  Receipt Date: 20130729
  Transmission Date: 20140515
  Serious: Yes (Other)
  Sender: FDA-Public Use
  Company Number: US-JNJFOC-20130710878

PATIENT
  Age: 59 Year
  Sex: Female

DRUGS (1)
  1. NICOTINE POLACRILEX 4MG GUM [Suspect]
     Indication: SMOKING CESSATION THERAPY
     Dosage: PATIENT HAS BEEN USING NICORETTE FOR ABOUT SIX MONTHS.
     Route: 065

REACTIONS (3)
  - Lip discolouration [Not Recovered/Not Resolved]
  - Tongue discolouration [Not Recovered/Not Resolved]
  - Drug administration error [Not Recovered/Not Resolved]
